FAERS Safety Report 14752534 (Version 3)
Quarter: 2018Q2

REPORT INFORMATION
  Report Type: Spontaneous
  Country: US (occurrence: US)
  Receive Date: 20180412
  Receipt Date: 20180604
  Transmission Date: 20180711
  Serious: Yes (Disabling, Other)
  Sender: FDA-Public Use
  Company Number: US-REGENERON PHARMACEUTICALS, INC.-2018-17835

PATIENT

DRUGS (7)
  1. SENOKOT [Concomitant]
     Active Substance: SENNOSIDES
     Indication: PRODUCT USED FOR UNKNOWN INDICATION
  2. VITAMIN C [Concomitant]
     Active Substance: ASCORBIC ACID
     Indication: PRODUCT USED FOR UNKNOWN INDICATION
  3. FOSAMAX [Concomitant]
     Active Substance: ALENDRONATE SODIUM
     Indication: PRODUCT USED FOR UNKNOWN INDICATION
  4. CALCIUM + D3                       /09279801/ [Concomitant]
     Indication: PRODUCT USED FOR UNKNOWN INDICATION
  5. AZOR                               /00595201/ [Concomitant]
     Active Substance: ALPRAZOLAM
     Indication: PRODUCT USED FOR UNKNOWN INDICATION
  6. EYLEA [Suspect]
     Active Substance: AFLIBERCEPT
     Indication: NEOVASCULAR AGE-RELATED MACULAR DEGENERATION
     Dosage: OD, 2.0 MG/ 0.05 CC, EVERY 5 TO 6 WEEKS
     Route: 031
     Dates: start: 20170928, end: 20171026
  7. EYLEA [Suspect]
     Active Substance: AFLIBERCEPT
     Dosage: OD, 2.0 MG/ 0.05 CC, EVERY 5 TO 6 WEEKS, LAST DOSE
     Route: 031
     Dates: start: 20171026, end: 20171026

REACTIONS (6)
  - Vitrectomy [Recovered/Resolved]
  - Rhegmatogenous retinal detachment [Recovered/Resolved]
  - Blindness transient [Not Recovered/Not Resolved]
  - Vitrectomy [Recovered/Resolved]
  - Endophthalmitis [Recovered/Resolved]
  - Vitrectomy [Recovered/Resolved]

NARRATIVE: CASE EVENT DATE: 20171028
